FAERS Safety Report 15714986 (Version 1)
Quarter: 2018Q4

REPORT INFORMATION
  Report Type: Spontaneous
  Country: HU (occurrence: HU)
  Receive Date: 20181212
  Receipt Date: 20181212
  Transmission Date: 20190205
  Serious: Yes (Other)
  Sender: FDA-Public Use
  Company Number: HU-ARIAD-2017HU009124

PATIENT
  Age: 67 Year
  Sex: Male

DRUGS (2)
  1. METFORMIN [Concomitant]
     Active Substance: METFORMIN HYDROCHLORIDE
     Indication: MALIGNANT PALATE NEOPLASM
     Dosage: 1000 MG, QD
     Route: 065
     Dates: start: 20170725, end: 201804
  2. ICLUSIG [Suspect]
     Active Substance: PONATINIB
     Indication: MALIGNANT PALATE NEOPLASM
     Dosage: 45 MG, QD
     Route: 048
     Dates: start: 20170725, end: 201804

REACTIONS (2)
  - Malignant palate neoplasm [Unknown]
  - Off label use [Unknown]

NARRATIVE: CASE EVENT DATE: 20170725
